FAERS Safety Report 6126575-2 (Version None)
Quarter: 2009Q1

REPORT INFORMATION
  Report Type: 
  Country: None (occurrence: None)
  Receive Date: 20090320
  Receipt Date: 20090310
  Transmission Date: 20090719
  Serious: Yes (Death, Life-Threatening, Hospitalization)
  Sender: FDA-Public Use
  Company Number: AU-PFIZER INC-2008034992

PATIENT

DRUGS (6)
  1. LYRICA [Suspect]
     Indication: NEURALGIA
     Route: 048
     Dates: start: 20070827
  2. LYRICA [Suspect]
  3. LYRICA [Suspect]
     Indication: NEUROPATHY PERIPHERAL
  4. DURAGESIC-100 [Concomitant]
     Route: 061
  5. PERINDOPRIL ERBUMINE [Concomitant]
     Route: 048
  6. CARDIZEM [Concomitant]
     Route: 048

REACTIONS (2)
  - CARDIAC ARREST [None]
  - RENAL FAILURE ACUTE [None]
